FAERS Safety Report 25113330 (Version 1)
Quarter: 2025Q1

REPORT INFORMATION
  Report Type: Spontaneous
  Country: US (occurrence: None)
  Receive Date: 20250322
  Receipt Date: 20250322
  Transmission Date: 20250409
  Serious: Yes (Disabling)
  Sender: FDA-CTU
  Company Number: None

PATIENT
  Age: 78 Year
  Sex: Female
  Weight: 71.55 kg

DRUGS (3)
  1. ALENDRONATE [Suspect]
     Active Substance: ALENDRONATE SODIUM
     Indication: Osteopenia
     Route: 048
     Dates: start: 20240601, end: 20250227
  2. TRAMDOL [Concomitant]
  3. MELOXICAM [Concomitant]
     Active Substance: MELOXICAM

REACTIONS (2)
  - Arthralgia [None]
  - Lower limb fracture [None]

NARRATIVE: CASE EVENT DATE: 20250227
